FAERS Safety Report 8912041 (Version 1)
Quarter: 2012Q4

REPORT INFORMATION
  Report Type: 
  Country: US (occurrence: US)
  Receive Date: 20121115
  Receipt Date: 20121115
  Transmission Date: 20130627
  Serious: Yes (Other)
  Sender: FDA-Public Use
  Company Number: US-INCYTE CORPORATION-2012IN002284

PATIENT
  Age: 61 None
  Sex: Female

DRUGS (3)
  1. JAKAFI [Suspect]
     Dosage: 10 mg, bid
     Route: 048
     Dates: start: 20120828, end: 2012
  2. TRAMADOL [Concomitant]
  3. TYLENOL [Concomitant]

REACTIONS (3)
  - Fall [Unknown]
  - Rib fracture [Unknown]
  - Platelet count decreased [Unknown]
